FAERS Safety Report 7019557-X (Version None)
Quarter: 2010Q3

REPORT INFORMATION
  Report Type: 
  Country: None (occurrence: None)
  Receive Date: 20100928
  Receipt Date: 20100928
  Transmission Date: 20110219
  Serious: No
  Sender: FDA-Public Use
  Company Number: None

PATIENT
  Age: 45 Year
  Sex: Male
  Weight: 68.0396 kg

DRUGS (1)
  1. CLOZAPINE [Suspect]
     Dosage: 50 MG DAILY PO
     Route: 048

REACTIONS (1)
  - NEUTROPENIA [None]
